FAERS Safety Report 6344123-9 (Version None)
Quarter: 2009Q3

REPORT INFORMATION
  Report Type: 
  Country: None (occurrence: None)
  Receive Date: 20090908
  Receipt Date: 20090831
  Transmission Date: 20100115
  Serious: Yes (Other)
  Sender: FDA-Public Use
  Company Number: ES-BRISTOL-MYERS SQUIBB COMPANY-14760243

PATIENT
  Age: 46 Year
  Sex: Female

DRUGS (10)
  1. DIDANOSINE [Suspect]
     Indication: ANTIRETROVIRAL THERAPY
  2. EFAVIRENZ [Suspect]
     Indication: ANTIRETROVIRAL THERAPY
  3. STAVUDINE [Suspect]
     Indication: ANTIRETROVIRAL THERAPY
  4. INDINIVIR SULFATE [Suspect]
     Indication: ANTIRETROVIRAL THERAPY
  5. NELFINAVIR [Suspect]
     Indication: ANTIRETROVIRAL THERAPY
  6. NEVIRAPINE [Suspect]
     Indication: ANTIRETROVIRAL THERAPY
  7. LAMIVUDINE [Suspect]
     Indication: ANTIRETROVIRAL THERAPY
  8. LOPINAVIR [Suspect]
     Indication: ANTIRETROVIRAL THERAPY
  9. RITONAVIR [Suspect]
     Indication: ANTIRETROVIRAL THERAPY
  10. ZIDOVUDINE [Suspect]
     Indication: ANTIRETROVIRAL THERAPY

REACTIONS (1)
  - PORTAL HYPERTENSION [None]
